FAERS Safety Report 9117887 (Version 2)
Quarter: 2013Q1

REPORT INFORMATION
  Report Type: Spontaneous
  Country: CH (occurrence: CH)
  Receive Date: 20130128
  Receipt Date: 20130208
  Transmission Date: 20140127
  Serious: Yes (Other)
  Sender: FDA-Public Use
  Company Number: CH-PFIZER INC-2013032359

PATIENT
  Age: 54 Year
  Sex: Male

DRUGS (2)
  1. PANTOPRAZOLE [Suspect]
     Indication: DYSPEPSIA
     Dosage: 20 MG, 1X/DAY
     Route: 065
  2. RANITIDINE [Concomitant]
     Dosage: UNK

REACTIONS (2)
  - Angioedema [Unknown]
  - Dyspnoea [Unknown]
